FAERS Safety Report 5509610-1 (Version None)
Quarter: 2007Q4

REPORT INFORMATION
  Report Type: 
  Country: None (occurrence: None)
  Receive Date: 20071106
  Receipt Date: 20071106
  Transmission Date: 20080405
  Serious: Yes (Hospitalization)
  Sender: FDA-Public Use
  Company Number: None

PATIENT
  Age: 39 Year
  Sex: Female
  Weight: 66.2252 kg

DRUGS (3)
  1. ETHEDENT DENTAL CREAM 1.1% SODIUM FLUORIDE (ETHEX) [Suspect]
     Indication: DENTAL CARIES
     Dosage: ONE ORAL BRUSHING DAILY
     Route: 048
     Dates: start: 20070907, end: 20070914
  2. ORTHO-NOVUM 7/7/7(NORETHINDRONE/ETHINYL ESTRADIOL) [Concomitant]
  3. IBUPROFEN [Concomitant]

REACTIONS (3)
  - ANGINA PECTORIS [None]
  - ARTERIOSPASM CORONARY [None]
  - MYOCARDIAL INFARCTION [None]
